FAERS Safety Report 7646674-3 (Version None)
Quarter: 2011Q3

REPORT INFORMATION
  Report Type: 
  Country: None (occurrence: None)
  Receive Date: 20110801
  Receipt Date: 20110721
  Transmission Date: 20111222
  Serious: Yes (Other)
  Sender: FDA-Public Use
  Company Number: US-JNJFOC-20110709273

PATIENT
  Sex: Male
  Weight: 70.31 kg

DRUGS (6)
  1. KETOCONAZOLE [Suspect]
     Indication: PROSTATE CANCER
     Route: 048
     Dates: start: 20070101, end: 20110101
  2. LEXAPRO [Concomitant]
     Indication: DEPRESSION
     Route: 048
     Dates: start: 20050101
  3. CRESTOR [Concomitant]
     Indication: BLOOD CHOLESTEROL
     Route: 065
     Dates: start: 20070101
  4. AVODART [Concomitant]
     Indication: DIHYDROTESTOSTERONE LEVEL
     Route: 065
     Dates: start: 20080101
  5. ZYTIGA [Suspect]
     Indication: PROSTATE CANCER
     Route: 048
     Dates: start: 20110604
  6. URSODIOL [Concomitant]
     Indication: LIVER DISORDER
     Route: 048

REACTIONS (5)
  - BLOOD ALKALINE PHOSPHATASE INCREASED [None]
  - PROSTATIC SPECIFIC ANTIGEN INCREASED [None]
  - DRUG INEFFECTIVE [None]
  - FLUID RETENTION [None]
  - WEIGHT INCREASED [None]
